FAERS Safety Report 17191306 (Version 1)
Quarter: 2019Q4

REPORT INFORMATION
  Report Type: Spontaneous
  Country: US (occurrence: US)
  Receive Date: 20191223
  Receipt Date: 20191223
  Transmission Date: 20200122
  Serious: Yes (Life-Threatening, Hospitalization, Other)
  Sender: FDA-Public Use
  Company Number: US-GLAXOSMITHKLINE-US2019GSK231799

PATIENT
  Age: 18 Year
  Sex: Female

DRUGS (1)
  1. WELLBUTRIN [Suspect]
     Active Substance: BUPROPION HYDROCHLORIDE
     Indication: PRODUCT USED FOR UNKNOWN INDICATION
     Dosage: 27 G

REACTIONS (21)
  - Disorientation [Recovered/Resolved]
  - Respiratory disorder [Recovered/Resolved]
  - Pupil fixed [Recovered/Resolved]
  - Tachypnoea [Recovered/Resolved]
  - Depressed level of consciousness [Recovered/Resolved]
  - Electroencephalogram abnormal [Recovered/Resolved]
  - Agitation [Recovered/Resolved]
  - Pneumonia aspiration [Recovered/Resolved]
  - Loss of consciousness [Recovered/Resolved]
  - Corneal light reflex test abnormal [Recovered/Resolved]
  - Hallucination [Recovered/Resolved]
  - Seizure [Recovered/Resolved]
  - Suicide attempt [Recovered/Resolved]
  - Generalised tonic-clonic seizure [Recovered/Resolved]
  - Myoclonus [Recovered/Resolved]
  - Hypotonia [Recovered/Resolved]
  - Tachycardia [Recovered/Resolved]
  - Hypotension [Recovered/Resolved]
  - Areflexia [Recovered/Resolved]
  - Intentional overdose [Recovered/Resolved]
  - Oculocephalogyric reflex absent [Recovered/Resolved]

NARRATIVE: CASE EVENT DATE: 201710
